FAERS Safety Report 8459331-0 (Version None)
Quarter: 2012Q2

REPORT INFORMATION
  Report Type: 
  Country: None (occurrence: None)
  Receive Date: 20120622
  Receipt Date: 20120615
  Transmission Date: 20120825
  Serious: Yes (Other)
  Sender: FDA-Public Use
  Company Number: US-BAYER-2012-060074

PATIENT
  Sex: Female

DRUGS (3)
  1. METFORMIN HCL [Concomitant]
     Dosage: 20 UNK, UNK
  2. MIRENA [Suspect]
     Dosage: 20 MCG/24HR, CONT
     Dates: start: 20120615
  3. MIRENA [Suspect]
     Indication: MENSTRUAL DISORDER
     Dosage: 20 MCG/24HR, CONT
     Dates: start: 20070101, end: 20120615

REACTIONS (3)
  - POLYCYSTIC OVARIES [None]
  - DEPRESSION [None]
  - GASTRIC BANDING [None]
